FAERS Safety Report 20466829 (Version 9)
Quarter: 2025Q4

REPORT INFORMATION
  Report Type: Report from Study
  Country: KR (occurrence: KR)
  Receive Date: 20220214
  Receipt Date: 20251223
  Transmission Date: 20260118
  Serious: Yes (Hospitalization)
  Sender: ABBVIE
  Company Number: KR-ABBVIE-22K-090-4275740-00

PATIENT
  Age: 51 Year
  Sex: Female
  Weight: 65 kg

DRUGS (10)
  1. RINVOQ [Suspect]
     Active Substance: UPADACITINIB
     Indication: Rheumatoid arthritis
     Dosage: FILM-COATED TABLET.?FORM STRENGTH: 15 MILLIGRAM
     Route: 048
     Dates: start: 20210413, end: 20210705
  2. PREDNISOLONE [Concomitant]
     Active Substance: PREDNISOLONE
     Indication: Rheumatoid arthritis
     Dates: start: 20161222
  3. RHEUMATREX [Concomitant]
     Active Substance: METHOTREXATE SODIUM
     Indication: Rheumatoid arthritis
     Dates: start: 20170106
  4. ARAVA [Concomitant]
     Active Substance: LEFLUNOMIDE
     Indication: Rheumatoid arthritis
     Dates: start: 20170303
  5. METHOTREXATE SODIUM [Concomitant]
     Active Substance: METHOTREXATE SODIUM
     Indication: Rheumatoid arthritis
     Dosage: 50MG/ML 0.3ML
     Route: 042
     Dates: start: 20210413, end: 20210601
  6. SOLONDO [Concomitant]
     Indication: Rheumatoid arthritis
     Route: 048
     Dates: start: 20210413, end: 20210511
  7. FOLIC ACID [Concomitant]
     Active Substance: FOLIC ACID
     Indication: Rheumatoid arthritis
     Dosage: SINIL. 1 MILLIGRAM
     Route: 048
     Dates: start: 20210413
  8. REBAMIPIDE [Concomitant]
     Active Substance: REBAMIPIDE
     Indication: Rheumatoid arthritis
     Dosage: 100 MILLIGRAM
     Route: 048
     Dates: start: 20210413
  9. Dicamax d [Concomitant]
     Indication: Rheumatoid arthritis
     Route: 048
     Dates: start: 20210413
  10. RHEUDENOLONE [Concomitant]
     Indication: Rheumatoid arthritis
     Dosage: 40MG/ML, ONCE
     Route: 042
     Dates: start: 20210413, end: 20210413

REACTIONS (5)
  - Post herpetic neuralgia [Recovering/Resolving]
  - Gastroenteritis norovirus [Recovered/Resolved]
  - Herpes zoster [Recovered/Resolved]
  - Pneumocystis jirovecii pneumonia [Recovered/Resolved]
  - Cytomegalovirus infection [Not Recovered/Not Resolved]

NARRATIVE: CASE EVENT DATE: 20210620
